FAERS Safety Report 24281530 (Version 4)
Quarter: 2025Q3

REPORT INFORMATION
  Report Type: Other
  Country: CA (occurrence: CA)
  Receive Date: 20240904
  Receipt Date: 20250819
  Transmission Date: 20251021
  Serious: Yes (Death, Hospitalization, Other)
  Sender: APOTEX
  Company Number: CA-APOTEX-2024AP009797

PATIENT
  Age: 91 Year
  Sex: Male

DRUGS (8)
  1. GABAPENTIN [Suspect]
     Active Substance: GABAPENTIN
     Indication: Sleep disorder due to a general medical condition
     Route: 065
  2. GABAPENTIN [Suspect]
     Active Substance: GABAPENTIN
     Indication: Pruritus
     Route: 065
  3. DUPIXENT [Suspect]
     Active Substance: DUPILUMAB
     Indication: Dermatitis atopic
     Route: 058
  4. DUPIXENT [Suspect]
     Active Substance: DUPILUMAB
     Dosage: 300 MILLIGRAM, Q.O.WK., THERAPY DURATION 122
     Route: 058
  5. HYDROCORTISONE [Concomitant]
     Active Substance: HYDROCORTISONE
     Indication: Product used for unknown indication
     Route: 065
  6. KETOCONAZOLE [Concomitant]
     Active Substance: KETOCONAZOLE
     Indication: Product used for unknown indication
     Route: 065
  7. WARFARIN [Concomitant]
     Active Substance: WARFARIN
     Indication: Product used for unknown indication
     Route: 065
  8. ATORVASTATIN [Concomitant]
     Active Substance: ATORVASTATIN
     Indication: Product used for unknown indication
     Route: 065

REACTIONS (20)
  - Death [Fatal]
  - Abdominal pain [Fatal]
  - Arthralgia [Fatal]
  - Cardiac failure [Fatal]
  - Cerebrovascular accident [Fatal]
  - Dizziness postural [Fatal]
  - Heart rate increased [Fatal]
  - Muscle twitching [Fatal]
  - Haemarthrosis [Fatal]
  - Palpitations [Fatal]
  - Peripheral swelling [Fatal]
  - Pruritus [Fatal]
  - Sleep disorder due to a general medical condition [Fatal]
  - Inappropriate schedule of product administration [Fatal]
  - Cardiac disorder [Fatal]
  - Generalised oedema [Fatal]
  - Constipation [Fatal]
  - Confusional state [Fatal]
  - Drug ineffective [Fatal]
  - Product use in unapproved indication [Fatal]
